FAERS Safety Report 8458255-2 (Version None)
Quarter: 2012Q2

REPORT INFORMATION
  Report Type: 
  Country: None (occurrence: None)
  Receive Date: 20120622
  Receipt Date: 20120619
  Transmission Date: 20120825
  Serious: Yes (Other)
  Sender: FDA-Public Use
  Company Number: US-AMGEN-USASP2012036043

PATIENT
  Age: 71 Year
  Sex: Female
  Weight: 67.12 kg

DRUGS (1)
  1. PROCRIT [Suspect]
     Indication: PRODUCT USED FOR UNKNOWN INDICATION
     Dosage: UNK
     Route: 058

REACTIONS (5)
  - LIVER TRANSPLANT [None]
  - ANAEMIA [None]
  - HAEMOGLOBIN ABNORMAL [None]
  - DRUG DOSE OMISSION [None]
  - FATIGUE [None]
